FAERS Safety Report 18987330 (Version 1)
Quarter: 2021Q1

REPORT INFORMATION
  Report Type: Spontaneous
  Country: FR (occurrence: FR)
  Receive Date: 20210309
  Receipt Date: 20210309
  Transmission Date: 20210420
  Serious: Yes (Life-Threatening)
  Sender: FDA-Public Use
  Company Number: FR-ALLERGAN-2109875US

PATIENT
  Sex: Female
  Weight: 32.5 kg

DRUGS (9)
  1. AMLOR [Concomitant]
     Active Substance: AMLODIPINE BESYLATE
  2. PETINIMID [Concomitant]
     Active Substance: ETHOSUXIMIDE
     Dosage: 250 MG
  3. BOTOX [Suspect]
     Active Substance: ONABOTULINUMTOXINA
     Indication: NEUROGENIC BLADDER
     Dosage: 1 DF, SINGLE
     Route: 051
     Dates: start: 20210122, end: 20210122
  4. SODIUM BICARBONATE. [Concomitant]
     Active Substance: SODIUM BICARBONATE
  5. DIPRIVAN [Concomitant]
     Active Substance: PROPOFOL
  6. OSPOLOT [Concomitant]
     Active Substance: SULTHIAME
     Dosage: 50 MG
  7. AMOXICILLINE [Concomitant]
     Active Substance: AMOXICILLIN
  8. SEVOFLURANE. [Concomitant]
     Active Substance: SEVOFLURANE
  9. SUFENTANIL [Concomitant]
     Active Substance: SUFENTANIL

REACTIONS (5)
  - Acute pulmonary oedema [Recovered/Resolved]
  - Rash [Recovered/Resolved]
  - Haemoptysis [Recovered/Resolved]
  - Pneumonia haemophilus [Recovering/Resolving]
  - Off label use [Unknown]

NARRATIVE: CASE EVENT DATE: 20210122
